FAERS Safety Report 5305951-1 (Version None)
Quarter: 2007Q2

REPORT INFORMATION
  Report Type: 
  Country: None (occurrence: None)
  Receive Date: 20070424
  Receipt Date: 20070413
  Transmission Date: 20071010
  Serious: Yes (Other)
  Sender: FDA-Public Use
  Company Number: IE-JNJFOC-20070304196

PATIENT
  Sex: Female

DRUGS (3)
  1. ORTHO EVRA [Suspect]
     Indication: POLYMENORRHOEA
     Route: 062
     Dates: start: 20070101
  2. ORTHO EVRA [Suspect]
     Indication: MENORRHAGIA
     Route: 062
     Dates: start: 20070101
  3. ORTHO EVRA [Suspect]
     Indication: CONTRACEPTION
     Route: 062
     Dates: start: 20070101

REACTIONS (5)
  - DYSKINESIA [None]
  - HEADACHE [None]
  - HYPOAESTHESIA [None]
  - MUSCLE TWITCHING [None]
  - SENSATION OF HEAVINESS [None]
